FAERS Safety Report 23503754 (Version 1)
Quarter: 2024Q1

REPORT INFORMATION
  Report Type: Report from Study
  Country: US (occurrence: US)
  Receive Date: 20240209
  Receipt Date: 20240209
  Transmission Date: 20240410
  Serious: Yes (Other)
  Sender: FDA-Public Use
  Company Number: US-UCBSA-2024006213

PATIENT
  Sex: Female

DRUGS (1)
  1. FINTEPLA [Suspect]
     Active Substance: FENFLURAMINE
     Indication: Lennox-Gastaut syndrome
     Dosage: 5.9 MILLILITER, 2X/DAY (BID)
     Dates: start: 20240110

REACTIONS (4)
  - Seizure [Recovered/Resolved]
  - Somnolence [Not Recovered/Not Resolved]
  - Asthenia [Not Recovered/Not Resolved]
  - Fall [Not Recovered/Not Resolved]

NARRATIVE: CASE EVENT DATE: 20240101
